FAERS Safety Report 6809291-0 (Version None)
Quarter: 2010Q2

REPORT INFORMATION
  Report Type: 
  Country: None (occurrence: None)
  Receive Date: 20100630
  Receipt Date: 20100623
  Transmission Date: 20101027
  Serious: Yes (Hospitalization, Other)
  Sender: FDA-Public Use
  Company Number: JP-BAYER-201012536BYL

PATIENT
  Age: 76 Year
  Sex: Female
  Weight: 61 kg

DRUGS (7)
  1. NEXAVAR [Suspect]
     Indication: RENAL CELL CARCINOMA
     Dosage: UNIT DOSE: 200 MG
     Route: 048
     Dates: start: 20100512, end: 20100521
  2. NEXAVAR [Suspect]
     Dosage: UNIT DOSE: 200 MG
     Route: 048
     Dates: start: 20100522, end: 20100523
  3. MEIACT [Suspect]
     Indication: DRUG USE FOR UNKNOWN INDICATION
     Route: 048
     Dates: start: 20100522, end: 20100523
  4. CALONAL [Concomitant]
     Indication: ANTIPYRESIS
     Dosage: UNIT DOSE: 200 MG
     Route: 048
     Dates: start: 20100526, end: 20100527
  5. PREDNISOLONE [Concomitant]
     Indication: ANTIPYRESIS
     Dosage: UNIT DOSE: 5 MG
     Route: 048
     Dates: start: 20100529, end: 20100531
  6. PREDNISOLONE [Concomitant]
     Dosage: UNIT DOSE: 5 MG
     Route: 048
     Dates: start: 20100601
  7. ALLELOCK [Concomitant]
     Indication: ANTIPYRESIS
     Dosage: UNIT DOSE: 5 MG
     Route: 048
     Dates: start: 20100529

REACTIONS (11)
  - ALOPECIA [None]
  - ATRIAL FIBRILLATION [None]
  - DECREASED APPETITE [None]
  - ENANTHEMA [None]
  - HEPATIC FUNCTION ABNORMAL [None]
  - PALMAR-PLANTAR ERYTHRODYSAESTHESIA SYNDROME [None]
  - PLATELET COUNT DECREASED [None]
  - PYREXIA [None]
  - RASH [None]
  - SKIN DISORDER [None]
  - STOMATITIS [None]
